FAERS Safety Report 20140143 (Version 2)
Quarter: 2022Q1

REPORT INFORMATION
  Report Type: Spontaneous
  Country: US (occurrence: US)
  Receive Date: 20211202
  Receipt Date: 20220216
  Transmission Date: 20220423
  Serious: No
  Sender: FDA-Public Use
  Company Number: US-BRISTOL-MYERS SQUIBB COMPANY-BMS-2021-127304

PATIENT
  Sex: Female
  Weight: 45.359 kg

DRUGS (2)
  1. ELIQUIS [Suspect]
     Active Substance: APIXABAN
     Indication: Cardiovascular event prophylaxis
     Dosage: UNK
     Route: 065
  2. UNSPECIFIED INGREDIENT [Suspect]
     Active Substance: UNSPECIFIED INGREDIENT
     Indication: Prophylaxis
     Dosage: PATIENT RECEIVED 1 ST AND 2 ND DOSE ALONG WITH BOOSTER DOSE
     Route: 065

REACTIONS (4)
  - Stress [Unknown]
  - Intentional product use issue [Unknown]
  - Pain in extremity [Unknown]
  - Injection site mass [Unknown]
